FAERS Safety Report 7739832-0 (Version None)
Quarter: 2011Q3

REPORT INFORMATION
  Report Type: 
  Country: None (occurrence: None)
  Receive Date: 20110909
  Receipt Date: 20110830
  Transmission Date: 20111222
  Serious: Yes (Hospitalization, Other)
  Sender: FDA-Public Use
  Company Number: PHHY2011CH58463

PATIENT
  Age: 50 Year
  Sex: Female

DRUGS (10)
  1. ACETAMINOPHEN [Concomitant]
     Dosage: 1 G, PRN
  2. FOSAMAX [Concomitant]
     Indication: OSTEOPOROSIS
     Dosage: UNK UKN, UNK
  3. BONIVA [Concomitant]
     Indication: OSTEOPOROSIS
     Dosage: UNK UKN, UNK
  4. PANTOPRAZOLE [Suspect]
     Dosage: 40 MG, ORAL DAILY DOSE
     Route: 048
     Dates: end: 20110407
  5. MEFENAMIC ACID [Suspect]
     Dosage: 1500 MG,DAILY
     Route: 048
     Dates: end: 20110401
  6. NOVALGIN [Suspect]
     Dosage: 80 DRP, UNK
     Route: 048
  7. CLARITHROMYCIN [Concomitant]
     Dosage: 250 MG, ORAL DAILY DOSE
     Route: 048
     Dates: end: 20110301
  8. ZOLEDRONOC ACID [Suspect]
     Indication: OSTEOPOROSIS
     Dosage: UNK UKN, UNK
     Route: 042
     Dates: start: 20080101
  9. AUGMENTIN '125' [Suspect]
     Dosage: UNK UKN, UNK
     Route: 048
     Dates: end: 20110301
  10. AUGMENTIN '125' [Suspect]
     Dosage: UNK UKN, UNK
     Dates: start: 20110301

REACTIONS (26)
  - LEUKOCYTOCLASTIC VASCULITIS [None]
  - INFLAMMATION [None]
  - RETINOL BINDING PROTEIN INCREASED [None]
  - ABSCESS JAW [None]
  - BONE SWELLING [None]
  - PAIN IN JAW [None]
  - GINGIVAL PAIN [None]
  - GINGIVAL ERYTHEMA [None]
  - PYREXIA [None]
  - ERYTHEMA [None]
  - TEETH BRITTLE [None]
  - MYALGIA [None]
  - BLOOD CREATININE INCREASED [None]
  - ALPHA 1 MICROGLOBULIN INCREASED [None]
  - GINGIVAL SWELLING [None]
  - TUBULOINTERSTITIAL NEPHRITIS [None]
  - NECROSIS [None]
  - OSTEONECROSIS OF JAW [None]
  - ARTHRALGIA [None]
  - OSTEOMYELITIS [None]
  - OSTEITIS [None]
  - CACHEXIA [None]
  - NAUSEA [None]
  - RENAL FAILURE ACUTE [None]
  - RASH [None]
  - VEIN DISORDER [None]
